FAERS Safety Report 9727730 (Version 1)
Quarter: 2013Q4

REPORT INFORMATION
  Report Type: Spontaneous
  Country: US (occurrence: US)
  Receive Date: 20131203
  Receipt Date: 20131203
  Transmission Date: 20140711
  Serious: No
  Sender: FDA-Public Use
  Company Number: US-ENDO PHARMACEUTICALS INC.-AMIT20120003

PATIENT
  Age: 65 Year
  Sex: Female
  Weight: 79.45 kg

DRUGS (2)
  1. AMITRIPTYLINE HCL 25MG [Suspect]
     Indication: PAIN
     Route: 048
     Dates: start: 201112
  2. CELEBREX [Concomitant]
     Indication: PAIN
     Dates: start: 2010

REACTIONS (2)
  - Dysphagia [Not Recovered/Not Resolved]
  - Dysphonia [Not Recovered/Not Resolved]
